FAERS Safety Report 9608504 (Version 2)
Quarter: 2013Q4

REPORT INFORMATION
  Report Type: Report from Study
  Country: US (occurrence: US)
  Receive Date: 20131009
  Receipt Date: 20131009
  Transmission Date: 20140711
  Serious: Yes (Other)
  Sender: FDA-Public Use
  Company Number: US-SANOFI-AVENTIS-2013SA074727

PATIENT
  Age: 54 Year
  Sex: Male

DRUGS (1)
  1. AUBAGIO [Suspect]
     Indication: MULTIPLE SCLEROSIS
     Route: 048
     Dates: start: 20130623

REACTIONS (9)
  - Multiple sclerosis [Unknown]
  - Gait disturbance [Unknown]
  - Pain in extremity [Unknown]
  - Back pain [Unknown]
  - Dysstasia [Unknown]
  - Muscular weakness [Unknown]
  - Muscle spasms [Unknown]
  - Micturition disorder [Unknown]
  - Nasal congestion [Not Recovered/Not Resolved]
